FAERS Safety Report 4950498-5 (Version None)
Quarter: 2006Q1

REPORT INFORMATION
  Report Type: 
  Country: None (occurrence: None)
  Receive Date: 20060322
  Receipt Date: 20060313
  Transmission Date: 20060701
  Serious: Yes (Other)
  Sender: FDA-Public Use
  Company Number: GB-GLAXOSMITHKLINE-B0415659A

PATIENT
  Age: 37 Year
  Sex: Female
  Weight: 63 kg

DRUGS (4)
  1. ROSIGLITAZONE [Suspect]
     Indication: DRUG USE FOR UNKNOWN INDICATION
     Dosage: 4MG PER DAY
     Route: 048
     Dates: start: 20050729
  2. SIMVASTATIN [Suspect]
     Indication: PROPHYLAXIS
     Dosage: 1U UNKNOWN
     Route: 048
     Dates: start: 20051001
  3. METFORMIN [Concomitant]
     Indication: DIABETES MELLITUS
     Dosage: 1000MG PER DAY
     Route: 048
     Dates: start: 20030101
  4. RISPERIDONE [Concomitant]
     Indication: SCHIZOPHRENIA
     Dosage: 1U UNKNOWN
     Route: 048
     Dates: start: 20010101

REACTIONS (1)
  - AMENORRHOEA [None]
